FAERS Safety Report 14161935 (Version 2)
Quarter: 2017Q4

REPORT INFORMATION
  Report Type: Spontaneous
  Country: US (occurrence: US)
  Receive Date: 20171106
  Receipt Date: 20171116
  Transmission Date: 20180321
  Serious: Yes (Hospitalization, Other)
  Sender: FDA-Public Use
  Company Number: US-NOVOPROD-570623

PATIENT
  Age: 70 Year
  Sex: Female

DRUGS (1)
  1. NOVOLOG [Suspect]
     Active Substance: INSULIN ASPART
     Indication: TYPE 1 DIABETES MELLITUS
     Dosage: UNK
     Route: 058

REACTIONS (6)
  - Loss of consciousness [Recovered/Resolved]
  - Blindness [Not Recovered/Not Resolved]
  - Ocular vascular disorder [Unknown]
  - Fall [Recovered/Resolved]
  - Blood glucose fluctuation [Unknown]
  - Cataract [Unknown]

NARRATIVE: CASE EVENT DATE: 201709
